FAERS Safety Report 12670930 (Version 1)
Quarter: 2016Q3

REPORT INFORMATION
  Report Type: Spontaneous
  Country: US (occurrence: US)
  Receive Date: 20160822
  Receipt Date: 20160822
  Transmission Date: 20161109
  Serious: No
  Sender: FDA-Public Use
  Company Number: US-JAZZ-2016-US-006205

PATIENT
  Age: 36 Year
  Sex: Female

DRUGS (21)
  1. IBUPROFEN. [Concomitant]
     Active Substance: IBUPROFEN
  2. XYREM [Suspect]
     Active Substance: SODIUM OXYBATE
     Indication: CATAPLEXY
     Dosage: DOSE ADJUSTMENTS
     Route: 048
     Dates: start: 2015, end: 2015
  3. VYVANSE [Concomitant]
     Active Substance: LISDEXAMFETAMINE DIMESYLATE
  4. METHOCARBAMOL. [Concomitant]
     Active Substance: METHOCARBAMOL
  5. HYDROCODONE/ACETAMINOPHEN [Concomitant]
     Active Substance: ACETAMINOPHEN\HYDROCODONE
  6. XYREM [Suspect]
     Active Substance: SODIUM OXYBATE
     Dosage: 4.5 G, BID
     Route: 048
     Dates: start: 201603
  7. LYRICA [Concomitant]
     Active Substance: PREGABALIN
  8. NUVIGIL [Concomitant]
     Active Substance: ARMODAFINIL
  9. RITALIN [Concomitant]
     Active Substance: METHYLPHENIDATE HYDROCHLORIDE
  10. TRAMADOL. [Concomitant]
     Active Substance: TRAMADOL
  11. GABAPENTIN. [Concomitant]
     Active Substance: GABAPENTIN
  12. SUMATRIPTAN SUCCINATE. [Concomitant]
     Active Substance: SUMATRIPTAN SUCCINATE
  13. DICLOFENAC POTASSIUM. [Concomitant]
     Active Substance: DICLOFENAC POTASSIUM
  14. CHANTIX [Concomitant]
     Active Substance: VARENICLINE TARTRATE
  15. PERCOCET [Concomitant]
     Active Substance: ACETAMINOPHEN\OXYCODONE HYDROCHLORIDE
  16. XYREM [Suspect]
     Active Substance: SODIUM OXYBATE
     Indication: SOMNOLENCE
     Dosage: 4.5 G, BID
     Route: 048
     Dates: start: 201506
  17. MULTIVITAMINS [Concomitant]
     Active Substance: VITAMINS
  18. VITAMIN D [Concomitant]
     Active Substance: CHOLECALCIFEROL
  19. EFFEXOR XR [Concomitant]
     Active Substance: VENLAFAXINE HYDROCHLORIDE
  20. DEPO-PROVERA [Concomitant]
     Active Substance: MEDROXYPROGESTERONE ACETATE
  21. XYREM [Suspect]
     Active Substance: SODIUM OXYBATE
     Indication: NARCOLEPSY
     Dosage: 2.25 G, BID
     Route: 048
     Dates: start: 201505, end: 201505

REACTIONS (4)
  - Skin discolouration [Unknown]
  - Skin disorder [Unknown]
  - Nail disorder [Unknown]
  - Rash [Unknown]

NARRATIVE: CASE EVENT DATE: 201510
